FAERS Safety Report 4486418-X (Version None)
Quarter: 2004Q4

REPORT INFORMATION
  Report Type: 
  Country: None (occurrence: None)
  Receive Date: 20041027
  Receipt Date: 20041016
  Transmission Date: 20050328
  Serious: Yes (Hospitalization)
  Sender: FDA-Public Use
  Company Number: DE-ABBOTT-04P-062-0277903-00

PATIENT
  Sex: Female
  Weight: 80 kg

DRUGS (2)
  1. MERIDIA [Suspect]
     Indication: DRUG USE FOR UNKNOWN INDICATION
     Route: 048
  2. ETHANOL [Concomitant]
     Indication: DRUG USE FOR UNKNOWN INDICATION
     Route: 048

REACTIONS (3)
  - ALCOHOL USE [None]
  - APATHY [None]
  - HEADACHE [None]
